FAERS Safety Report 20803908 (Version 10)
Quarter: 2025Q3

REPORT INFORMATION
  Report Type: Report from Study
  Country: US (occurrence: US)
  Receive Date: 20220509
  Receipt Date: 20250912
  Transmission Date: 20251021
  Serious: Yes (Other)
  Sender: TAKEDA
  Company Number: US-TAKEDA-2022TUS015943

PATIENT
  Age: 65 Year
  Sex: Male

DRUGS (19)
  1. BRIGATINIB [Suspect]
     Active Substance: BRIGATINIB
     Indication: Lung neoplasm malignant
     Dosage: 30 MILLIGRAM, QD
     Dates: start: 201911, end: 202102
  2. BRIGATINIB [Suspect]
     Active Substance: BRIGATINIB
     Indication: Metastases to central nervous system
  3. BRIGATINIB [Suspect]
     Active Substance: BRIGATINIB
     Dosage: 60 MILLIGRAM, QD
     Dates: start: 20230608, end: 20230712
  4. BRIGATINIB [Suspect]
     Active Substance: BRIGATINIB
     Dosage: 60 MILLIGRAM, QD
     Dates: start: 20230806
  5. BRIGATINIB [Suspect]
     Active Substance: BRIGATINIB
     Dosage: 30 MILLIGRAM, QD
  6. BRIGATINIB [Suspect]
     Active Substance: BRIGATINIB
     Dosage: 30 MILLIGRAM, BID
  7. NALTREXONE [Suspect]
     Active Substance: NALTREXONE
     Indication: Lyme disease
  8. LAMOTRIGINE [Concomitant]
     Active Substance: LAMOTRIGINE
  9. ACETAMINOPHEN [Concomitant]
     Active Substance: ACETAMINOPHEN
  10. ALFUZOSIN HYDROCHLORIDE [Concomitant]
     Active Substance: ALFUZOSIN HYDROCHLORIDE
  11. AMOXICILLIN [Concomitant]
     Active Substance: AMOXICILLIN
  12. DIETARY SUPPLEMENT\HERBALS\INDIAN FRANKINCENSE [Concomitant]
     Active Substance: DIETARY SUPPLEMENT\HERBALS\INDIAN FRANKINCENSE
  13. VITAMIN B12 [Concomitant]
     Active Substance: CYANOCOBALAMIN
  14. LACOSAMIDE [Concomitant]
     Active Substance: LACOSAMIDE
  15. SENNOSIDES [Concomitant]
     Active Substance: SENNOSIDES
  16. Epstein-Barr virus vaccine [Concomitant]
  17. DIETARY SUPPLEMENT\HERBALS\MILK THISTLE [Concomitant]
     Active Substance: MILK THISTLE
  18. IVERMECTIN [Concomitant]
     Active Substance: IVERMECTIN
  19. MEBENDAZOLE [Concomitant]
     Active Substance: MEBENDAZOLE

REACTIONS (18)
  - Lyme disease [Unknown]
  - Nephrolithiasis [Recovered/Resolved]
  - Cardiac disorder [Not Recovered/Not Resolved]
  - Muscular weakness [Unknown]
  - Central nervous system lesion [Unknown]
  - Drug interaction [Not Recovered/Not Resolved]
  - Immune system disorder [Unknown]
  - Feeling abnormal [Unknown]
  - Decreased activity [Unknown]
  - Balance disorder [Not Recovered/Not Resolved]
  - Drug intolerance [Recovering/Resolving]
  - Product use issue [Not Recovered/Not Resolved]
  - Depression [Not Recovered/Not Resolved]
  - Visual impairment [Unknown]
  - Arthralgia [Not Recovered/Not Resolved]
  - Fatigue [Unknown]
  - Vision blurred [Not Recovered/Not Resolved]
  - Asthenia [Not Recovered/Not Resolved]

NARRATIVE: CASE EVENT DATE: 20230401
